FAERS Safety Report 5671023-X (Version None)
Quarter: 2008Q1

REPORT INFORMATION
  Report Type: 
  Country: None (occurrence: None)
  Receive Date: 20080318
  Receipt Date: 20080307
  Transmission Date: 20080703
  Serious: Yes (Hospitalization)
  Sender: FDA-Public Use
  Company Number: US-ELI_LILLY_AND_COMPANY-US200803001657

PATIENT
  Sex: Female
  Weight: 136.5 kg

DRUGS (13)
  1. BYETTA [Suspect]
     Dosage: 5 UG, 2/D
     Route: 058
     Dates: start: 20041201, end: 20050101
  2. BYETTA [Suspect]
     Dosage: 10 UG, 2/D
     Route: 058
     Dates: start: 20050101, end: 20051201
  3. BYETTA [Suspect]
     Dosage: 5 UG, 2/D
     Route: 058
     Dates: start: 20080201, end: 20080301
  4. BYETTA [Suspect]
     Dosage: 10 UG, 2/D
     Route: 058
     Dates: start: 20080301
  5. GLIPIZIDE [Concomitant]
     Dosage: 10 MG, 2/D
  6. ISOSORBIDE MONONITRATE [Concomitant]
     Indication: ANGINA PECTORIS
     Dosage: 120 MG, DAILY (1/D)
  7. ATACAND [Concomitant]
     Indication: BLOOD PRESSURE
     Dosage: 32 MG, EACH EVENING
  8. LIPITOR [Concomitant]
     Indication: BLOOD CHOLESTEROL
     Dosage: 40 MG, EACH EVENING
  9. OMEGA 3 FISH OIL [Concomitant]
     Dosage: 1000 MG, DAILY (1/D)
  10. MULTI-VITAMIN [Concomitant]
  11. VITAMIN E [Concomitant]
  12. ASPIRIN [Concomitant]
     Dosage: 2 D/F, DAILY (1/D)
  13. ASCORBIC ACID [Concomitant]

REACTIONS (4)
  - BLOOD GLUCOSE INCREASED [None]
  - CARDIAC FAILURE [None]
  - DRUG INEFFECTIVE [None]
  - DYSPNOEA [None]
